FAERS Safety Report 8534347-4 (Version None)
Quarter: 2012Q3

REPORT INFORMATION
  Report Type: 
  Country: None (occurrence: None)
  Receive Date: 20120724
  Receipt Date: 20120717
  Transmission Date: 20120928
  Serious: Yes (Death, Life-Threatening, Other)
  Sender: FDA-Public Use
  Company Number: US-INCYTE CORPORATION-2012IN001250

PATIENT
  Age: 10 Year
  Sex: Male
  Weight: 33.4 kg

DRUGS (1)
  1. INCB018424 [Suspect]
     Indication: ACUTE LYMPHOCYTIC LEUKAEMIA
     Dosage: 39 MG/M2, BID
     Route: 048
     Dates: start: 20120620, end: 20120704

REACTIONS (8)
  - DEATH [None]
  - AMYLASE INCREASED [None]
  - CARDIAC ARREST [None]
  - LIPASE INCREASED [None]
  - HYPERKALAEMIA [None]
  - BLOOD CREATININE INCREASED [None]
  - HYPERMAGNESAEMIA [None]
  - HYPERAMMONAEMIA [None]
